FAERS Safety Report 8796680 (Version 1)
Quarter: 2012Q4

REPORT INFORMATION
  Report Type: 
  Country: US (occurrence: US)
  Receive Date: 20120919
  Receipt Date: 20120919
  Transmission Date: 20130627
  Serious: Yes (Other)
  Sender: FDA-Public Use
  Company Number: US-009507513-1209USA006048

PATIENT
  Age: 37 Year
  Sex: Female

DRUGS (3)
  1. SAPHRIS [Suspect]
     Route: 048
  2. SUBOXONE [Suspect]
     Dosage: 20-24 mg, qd
     Route: 060
  3. CELEXA [Suspect]

REACTIONS (7)
  - Insomnia [Unknown]
  - Hearing impaired [Unknown]
  - Balance disorder [Unknown]
  - Convulsion [Unknown]
  - Irritability [Unknown]
  - Malaise [Unknown]
  - Nervousness [Unknown]
